FAERS Safety Report 18193223 (Version 1)
Quarter: 2020Q3

REPORT INFORMATION
  Report Type: Spontaneous
  Country: FR (occurrence: FR)
  Receive Date: 20200825
  Receipt Date: 20200825
  Transmission Date: 20201103
  Serious: Yes (Life-Threatening)
  Sender: FDA-Public Use
  Company Number: FR-PFIZER INC-2020325609

PATIENT
  Age: 55 Year
  Sex: Female
  Weight: 92.7 kg

DRUGS (16)
  1. CREON [Concomitant]
     Active Substance: PANCRELIPASE AMYLASE\PANCRELIPASE LIPASE\PANCRELIPASE PROTEASE
     Indication: PANCREATIC FAILURE
     Dosage: 5 DF, DAILY (5 TABLETS DURING THE DAY AT MEAL/SNACK TIME)
     Route: 048
  2. URSODESOXYCHOLIC ACID [Concomitant]
     Active Substance: URSODIOL
     Indication: ALCOHOLIC LIVER DISEASE
     Dosage: 500 MG, DAILY
     Route: 048
     Dates: end: 20200623
  3. DAPTOMYCIN. [Concomitant]
     Active Substance: DAPTOMYCIN
     Indication: INFECTION
     Dosage: NOT ADMINISTERED
  4. OXAZEPAM. [Concomitant]
     Active Substance: OXAZEPAM
     Indication: PROPHYLAXIS AGAINST ALCOHOLIC WITHDRAWAL SYNDROME
     Dosage: 20 MG, DAILY
     Route: 048
  5. RACECADOTRIL [Concomitant]
     Active Substance: RACECADOTRIL
     Indication: DIARRHOEA
     Dosage: 300 MG, DAILY
     Route: 048
  6. PANTOPRAZOLE [Concomitant]
     Active Substance: PANTOPRAZOLE
     Indication: GASTROOESOPHAGEAL REFLUX DISEASE
     Dosage: 20 MG, DAILY
     Route: 048
  7. ATRACURIUM BESILATE [Suspect]
     Active Substance: ATRACURIUM BESYLATE
     Dosage: 500 MG
     Route: 042
     Dates: start: 20200703, end: 20200703
  8. LOPERAMIDE CHLORHYDRATE [Concomitant]
     Active Substance: LOPERAMIDE HYDROCHLORIDE
     Indication: DIARRHOEA
     Dosage: 12 MG, DAILY (2 CAPSULES MORNING, NOON, EVENING)
     Route: 048
  9. EUROBIOL [PANCREAS POWDER] [Concomitant]
     Indication: PANCREATIC FAILURE
     Dosage: 2 MEASURING SPOONS WITH EACH MEAL OR SNACK (5X / DAY)
     Route: 048
  10. CALCIDOSE VITAMINE D [Concomitant]
     Active Substance: CALCIUM\CHOLECALCIFEROL
     Indication: OXALOSIS
     Dosage: 1500 MG, DAILY (500MG/400UI 3 TIMES PER DAY)
     Route: 048
  11. CYAMEMAZINE [Concomitant]
     Active Substance: CYAMEMAZINE
     Indication: ANXIETY
     Dosage: 25 MG, DAILY (25 MG AS NEEDED)
     Route: 048
  12. FORMOTEROL FUMARATE DIHYDRATE [Concomitant]
     Active Substance: FORMOTEROL FUMARATE DIHYDRATE
     Indication: CHRONIC OBSTRUCTIVE PULMONARY DISEASE
     Dosage: 24 UG, DAILY
     Route: 055
  13. ESCITALOPRAM [Concomitant]
     Active Substance: ESCITALOPRAM OXALATE
     Indication: MIXED ANXIETY AND DEPRESSIVE DISORDER
     Dosage: 20 MG, DAILY
     Route: 048
     Dates: end: 20200710
  14. COUMADINE [Concomitant]
     Active Substance: WARFARIN SODIUM
     Dosage: UNK
     Route: 048
  15. NICOPATCH [Concomitant]
     Active Substance: NICOTINE
     Indication: TOBACCO WITHDRAWAL SYMPTOMS
     Dosage: 7 MG, DAILY
     Route: 003
     Dates: start: 20200630, end: 20200710
  16. SALBUTAMOL [Concomitant]
     Active Substance: ALBUTEROL
     Indication: CHRONIC OBSTRUCTIVE PULMONARY DISEASE
     Route: 055

REACTIONS (4)
  - Product administration error [Recovered/Resolved]
  - Product dispensing error [Recovered/Resolved]
  - Overdose [Recovered/Resolved]
  - Respiratory arrest [Recovered/Resolved]

NARRATIVE: CASE EVENT DATE: 20200703
